FAERS Safety Report 19375958 (Version 1)
Quarter: 2021Q2

REPORT INFORMATION
  Report Type: Report from Study
  Country: CO (occurrence: CO)
  Receive Date: 20210604
  Receipt Date: 20210604
  Transmission Date: 20210717
  Serious: Yes (Hospitalization)
  Sender: FDA-Public Use
  Company Number: CO-COLLEGIUM PHARMACEUTICAL, INC.-2021CGM00640

PATIENT
  Age: 73 Year
  Sex: Male

DRUGS (2)
  1. TAPENTADOL [Suspect]
     Active Substance: TAPENTADOL
     Indication: PAIN
     Dosage: 100 MG, EVERY 12 HOURS
     Route: 048
     Dates: start: 20190904
  2. TAPENTADOL [Suspect]
     Active Substance: TAPENTADOL
     Indication: SPINAL PAIN

REACTIONS (1)
  - Limb injury [Unknown]
